FAERS Safety Report 8624400-9 (Version None)
Quarter: 2012Q3

REPORT INFORMATION
  Report Type: 
  Country: None (occurrence: None)
  Receive Date: 20120827
  Receipt Date: 20120814
  Transmission Date: 20120928
  Serious: Yes (Hospitalization)
  Sender: FDA-Public Use
  Company Number: US-INCYTE CORPORATION-2012IN001119

PATIENT
  Sex: Male
  Weight: 77.46 kg

DRUGS (13)
  1. RUXOLITINIB PHOSPHATE [Suspect]
     Dosage: 10 MG, BID
     Route: 048
     Dates: start: 20120725
  2. CRESTOR [Concomitant]
     Indication: HYPERCHOLESTEROLAEMIA
     Dosage: 20 MG, QD
     Route: 048
     Dates: start: 20060101
  3. TENORMIN [Concomitant]
     Indication: HYPERTENSION
     Dosage: 10 MG, QD
     Route: 048
     Dates: start: 20060101
  4. RUXOLITINIB PHOSPHATE [Suspect]
     Indication: MYELOFIBROSIS
     Dosage: 10 MG, BID
     Route: 048
     Dates: start: 20111206, end: 20120621
  5. ASPIRIN [Concomitant]
     Indication: PROPHYLAXIS
     Dosage: 81 MG, QD
     Route: 048
     Dates: start: 20111116
  6. OMEPRAZOLE [Concomitant]
     Indication: DYSPEPSIA
     Dosage: 20 MG, QD
     Route: 048
     Dates: start: 20120105
  7. ALLOPURINOL [Concomitant]
     Indication: HYPERURICAEMIA
     Dosage: 300 MG, QD
     Route: 048
     Dates: start: 20120105
  8. XANAX [Concomitant]
     Indication: ANXIETY
     Dosage: .25 MG, PRN
     Route: 048
     Dates: start: 20110601
  9. TYLENOL [Concomitant]
     Indication: BACK PAIN
     Dosage: 500 MG, PRN
     Route: 048
     Dates: start: 20111101
  10. PLAVIX [Concomitant]
     Dosage: UNK
  11. VITAMIN D [Concomitant]
     Indication: MEDICAL DIET
     Dosage: 1 DF, QD
     Route: 048
     Dates: start: 20100101
  12. VICODIN [Concomitant]
     Indication: BACK PAIN
     Dosage: 750 MG, PRN
     Route: 048
     Dates: start: 20110801
  13. VITAMIN B12 [Concomitant]
     Indication: MEDICAL DIET
     Dosage: 1 DF, QD
     Route: 048
     Dates: start: 20100101

REACTIONS (2)
  - BRADYCARDIA [None]
  - CEREBROVASCULAR ACCIDENT [None]
